FAERS Safety Report 24765359 (Version 4)
Quarter: 2025Q1

REPORT INFORMATION
  Report Type: Report from Study
  Country: SE (occurrence: SE)
  Receive Date: 20241223
  Receipt Date: 20250319
  Transmission Date: 20250409
  Serious: Yes (Other)
  Sender: AUROBINDO
  Company Number: SE-ORIFARM-032418

PATIENT
  Age: 54 Year
  Sex: Male

DRUGS (2)
  1. SERTRALINE [Suspect]
     Active Substance: SERTRALINE HYDROCHLORIDE
     Indication: Depression
     Route: 065
  2. SERTRALINE [Suspect]
     Active Substance: SERTRALINE HYDROCHLORIDE
     Indication: Antidepressant therapy
     Dosage: 300 MILLIGRAM, ONCE A DAY (300 MG X 1 (AT THE TIME OF BIOPSY)
     Route: 065

REACTIONS (3)
  - Mitochondrial myopathy acquired [Unknown]
  - Muscular weakness [Unknown]
  - Off label use [Unknown]
